FAERS Safety Report 20218272 (Version 1)
Quarter: 2021Q4

REPORT INFORMATION
  Report Type: Spontaneous
  Country: US (occurrence: US)
  Receive Date: 20211222
  Receipt Date: 20211222
  Transmission Date: 20220303
  Serious: No
  Sender: FDA-Public Use
  Company Number: US-009507513-2112USA005810

PATIENT
  Age: 58 Year
  Sex: Female

DRUGS (4)
  1. NOXAFIL [Suspect]
     Active Substance: POSACONAZOLE
     Indication: Product used for unknown indication
     Dosage: UNK
     Dates: end: 202110
  2. CIPROFLOXACIN [Suspect]
     Active Substance: CIPROFLOXACIN
     Indication: Product used for unknown indication
     Dosage: UNK
     Dates: end: 202110
  3. ACYCLOVIR [Suspect]
     Active Substance: ACYCLOVIR
     Indication: Product used for unknown indication
     Dosage: UNK
     Dates: end: 202110
  4. XOSPATA [Suspect]
     Active Substance: GILTERITINIB
     Indication: Thrombocytopenia
     Dosage: 60 MILLIGRAM, ONCE DAILY
     Route: 048
     Dates: start: 20211014

REACTIONS (2)
  - Dermatitis allergic [Unknown]
  - Dry mouth [Unknown]

NARRATIVE: CASE EVENT DATE: 20211001
